FAERS Safety Report 11758887 (Version 2)
Quarter: 2015Q4

REPORT INFORMATION
  Report Type: Spontaneous
  Country: US (occurrence: US)
  Receive Date: 20151120
  Receipt Date: 20151207
  Transmission Date: 20160304
  Serious: Yes (Other)
  Sender: FDA-Public Use
  Company Number: US-SMITH AND NEPHEW, INC-2015SMT00541

PATIENT
  Sex: Male
  Weight: 117.91 kg

DRUGS (2)
  1. REGRANEX [Suspect]
     Active Substance: BECAPLERMIN
     Indication: SKIN ULCER
     Dosage: UNK UNK, 2X/DAY
     Route: 061
     Dates: start: 201510
  2. UNSPECIFIED BLOOD PRESSURE MEDICATION(S) [Concomitant]

REACTIONS (3)
  - Inappropriate schedule of drug administration [Unknown]
  - Osteomyelitis [Recovering/Resolving]
  - Off label use [Unknown]

NARRATIVE: CASE EVENT DATE: 2015
